FAERS Safety Report 20524813 (Version 2)
Quarter: 2022Q1

REPORT INFORMATION
  Report Type: Spontaneous
  Country: US (occurrence: US)
  Receive Date: 20220228
  Receipt Date: 20220321
  Transmission Date: 20220424
  Serious: No
  Sender: FDA-Public Use
  Company Number: US-ORGANON-O2202USA001962

PATIENT
  Age: 34 Year
  Sex: Female
  Weight: 83.447 kg

DRUGS (1)
  1. NEXPLANON [Suspect]
     Active Substance: ETONOGESTREL
     Dosage: ONE IMPLANT EVERY THREE YEARS, RIGHT UPPER ARM
     Route: 059
     Dates: start: 20150717

REACTIONS (5)
  - Complication associated with device [Not Recovered/Not Resolved]
  - Implant site scar [Unknown]
  - Amenorrhoea [Unknown]
  - Incorrect product administration duration [Unknown]
  - Complication of device removal [Recovering/Resolving]

NARRATIVE: CASE EVENT DATE: 20150717
